FAERS Safety Report 21753305 (Version 1)
Quarter: 2022Q4

REPORT INFORMATION
  Report Type: Spontaneous
  Country: US (occurrence: US)
  Receive Date: 20221220
  Receipt Date: 20221220
  Transmission Date: 20230113
  Serious: No
  Sender: FDA-Public Use
  Company Number: US-SA-SAC20221219000202

PATIENT
  Age: 44 Year
  Sex: Female

DRUGS (2)
  1. DUPIXENT [Suspect]
     Active Substance: DUPILUMAB
     Dosage: 300MG,  FREQUENCY: OTHER
     Route: 058
  2. OTEZLA [Concomitant]
     Active Substance: APREMILAST

REACTIONS (1)
  - Product prescribing error [Unknown]
